FAERS Safety Report 14893729 (Version 1)
Quarter: 2018Q2

REPORT INFORMATION
  Report Type: Spontaneous
  Country: JP (occurrence: JP)
  Receive Date: 20180514
  Receipt Date: 20180514
  Transmission Date: 20180711
  Serious: Yes (Other)
  Sender: FDA-Public Use
  Company Number: PHHY2018JP001543

PATIENT
  Age: 65 Year
  Sex: Male

DRUGS (4)
  1. CILOSTAZOL. [Suspect]
     Active Substance: CILOSTAZOL
     Indication: PROPHYLAXIS
     Dosage: 200 MG, QD
     Route: 065
  2. PHENYTOIN. [Concomitant]
     Active Substance: PHENYTOIN
     Indication: PROPHYLAXIS
     Dosage: 100 MG, BID
     Route: 042
  3. OZAGREL HYDROCHLORIDE [Suspect]
     Active Substance: OZAGREL HYDROCHLORIDE
     Indication: PROPHYLAXIS
     Dosage: 80 MG, QD
     Route: 065
  4. FASUDIL HYDROCHLORIDE [Suspect]
     Active Substance: FASUDIL HYDROCHLORIDE
     Indication: PROPHYLAXIS
     Dosage: 90 MG, QD
     Route: 065

REACTIONS (1)
  - Cerebral hyperperfusion syndrome [Unknown]
